FAERS Safety Report 5328409-2 (Version None)
Quarter: 2007Q2

REPORT INFORMATION
  Report Type: 
  Country: None (occurrence: None)
  Receive Date: 20070515
  Receipt Date: 20070515
  Transmission Date: 20071010
  Serious: Yes (Other)
  Sender: FDA-Public Use
  Company Number: None

PATIENT
  Age: 10 Year
  Sex: Female
  Weight: 24.0406 kg

DRUGS (1)
  1. SERTRALINE [Suspect]
     Indication: SOCIAL PHOBIA
     Dosage: 12.5 MG EVERY AM PO
     Route: 048
     Dates: start: 20070507, end: 20070514

REACTIONS (5)
  - FATIGUE [None]
  - INCREASED APPETITE [None]
  - INSOMNIA [None]
  - PHARMACEUTICAL PRODUCT COMPLAINT [None]
  - SLEEP DISORDER [None]
